FAERS Safety Report 4942843-1 (Version None)
Quarter: 2006Q1

REPORT INFORMATION
  Report Type: 
  Country: None (occurrence: None)
  Receive Date: 20060309
  Receipt Date: 20051017
  Transmission Date: 20060701
  Serious: Yes (Death, Life-Threatening)
  Sender: FDA-Public Use
  Company Number: 23100243

PATIENT
  Age: 83 Year
  Sex: Male

DRUGS (7)
  1. NOVASTAN [Suspect]
     Indication: CEREBRAL INFARCTION
     Dosage: 60 MG ONCE IV
     Route: 042
     Dates: start: 20050825, end: 20050826
  2. NOVASTAN [Suspect]
     Indication: CEREBRAL INFARCTION
     Dosage: 20 MG BID IV
     Route: 042
     Dates: start: 20050827, end: 20050901
  3. INTRALIPID 10% [Suspect]
     Indication: NUTRITIONAL SUPPORT
     Dosage: 250 ML CONT IV
     Route: 042
     Dates: start: 20050901, end: 20051005
  4. PANTOSIN [Concomitant]
  5. GASTER [Concomitant]
  6. SULPERAZON [Concomitant]
  7. GLUCOSE [Concomitant]

REACTIONS (3)
  - CHOLESTASIS [None]
  - MULTI-ORGAN FAILURE [None]
  - SEPSIS [None]
